FAERS Safety Report 4306855-3 (Version None)
Quarter: 2004Q1

REPORT INFORMATION
  Report Type: 
  Country: None (occurrence: None)
  Receive Date: 20040225
  Receipt Date: 20040209
  Transmission Date: 20041129
  Serious: Yes (Hospitalization)
  Sender: FDA-Public Use
  Company Number: FR_040203579

PATIENT
  Age: 50 Year
  Sex: Female

DRUGS (3)
  1. ZYPREXA [Suspect]
     Indication: PSYCHOTIC DISORDER
     Dosage: 15 MG/DAY
     Dates: start: 20020101
  2. LITHIUM [Concomitant]
  3. TERCIAN (CYAMEMAZINE) [Concomitant]

REACTIONS (1)
  - COLITIS ISCHAEMIC [None]
